FAERS Safety Report 6529441-3 (Version None)
Quarter: 2010Q1

REPORT INFORMATION
  Report Type: 
  Country: None (occurrence: None)
  Receive Date: 20100107
  Receipt Date: 20091231
  Transmission Date: 20100710
  Serious: Yes (Hospitalization)
  Sender: FDA-Public Use
  Company Number: US-AMGEN-KDL371523

PATIENT
  Sex: Female
  Weight: 57.7 kg

DRUGS (9)
  1. PROCRIT [Suspect]
     Indication: ANAEMIA
     Route: 058
     Dates: start: 20081118, end: 20091101
  2. IRON [Concomitant]
  3. MULTIVITAMINS AND IRON [Concomitant]
  4. TOPROL-XL [Concomitant]
  5. HEMATIDE [Concomitant]
  6. HYDROCHLOROTHIAZIDE [Concomitant]
  7. LISINOPRIL [Concomitant]
  8. ASPIRIN [Concomitant]
  9. GLUCOSAMINE [Concomitant]

REACTIONS (7)
  - CARDIAC FAILURE CONGESTIVE [None]
  - FALL [None]
  - HAEMOGLOBIN DECREASED [None]
  - PNEUMONIA [None]
  - RENAL FAILURE [None]
  - SERUM FERRITIN INCREASED [None]
  - TRANSIENT ISCHAEMIC ATTACK [None]
